FAERS Safety Report 24860580 (Version 1)
Quarter: 2025Q1

REPORT INFORMATION
  Report Type: Spontaneous
  Country: US (occurrence: US)
  Receive Date: 20250120
  Receipt Date: 20250120
  Transmission Date: 20250408
  Serious: Yes (Death, Hospitalization, Other)
  Sender: CHATTEM
  Company Number: US-OPELLA-2025OHG001308

PATIENT
  Age: 56 Year
  Sex: Female

DRUGS (1)
  1. GOLD BOND ORIGINAL STRENGTH [Suspect]
     Active Substance: MENTHOL
     Indication: Product used for unknown indication
     Route: 065

REACTIONS (4)
  - Pleural mesothelioma malignant [Fatal]
  - Septic shock [Fatal]
  - Pulmonary necrosis [Fatal]
  - Pulmonary embolism [Fatal]
